FAERS Safety Report 6230331-4 (Version None)
Quarter: 2009Q2

REPORT INFORMATION
  Report Type: 
  Country: None (occurrence: None)
  Receive Date: 20090611
  Receipt Date: 20090602
  Transmission Date: 20091009
  Serious: Yes (Hospitalization)
  Sender: FDA-Public Use
  Company Number: CLO09011776

PATIENT
  Age: 64 Year
  Sex: Female

DRUGS (3)
  1. PEPTO-BISMOL MAXIMUM STRENGTH, ORIGINAL FLAVOR (BISMUTH SUBSALICYLATE [Suspect]
     Indication: DIARRHOEA
     Dosage: UNK DOSE, UNK FREQ FOR 3 DAYS, ORAL
     Route: 048
     Dates: start: 20090512, end: 20090515
  2. BENICAR [Concomitant]
  3. LIPITOR [Concomitant]

REACTIONS (1)
  - MYOCLONUS [None]
